FAERS Safety Report 18777558 (Version 3)
Quarter: 2021Q2

REPORT INFORMATION
  Report Type: Spontaneous
  Country: US (occurrence: US)
  Receive Date: 20210122
  Receipt Date: 20210412
  Transmission Date: 20210717
  Serious: No
  Sender: FDA-Public Use
  Company Number: US-ALXN-A202100881

PATIENT
  Sex: Female

DRUGS (2)
  1. KANUMA [Suspect]
     Active Substance: SEBELIPASE ALFA
     Dosage: 4 MG/KG, QW
     Route: 065
  2. KANUMA [Suspect]
     Active Substance: SEBELIPASE ALFA
     Indication: LYSOSOMAL ACID LIPASE DEFICIENCY
     Dosage: UNK
     Route: 065

REACTIONS (5)
  - Drug specific antibody present [Unknown]
  - Neutralising antibodies positive [Unknown]
  - Infusion related reaction [Unknown]
  - Abdominal mass [Unknown]
  - Underdose [Unknown]
